FAERS Safety Report 14527216 (Version 3)
Quarter: 2018Q1

REPORT INFORMATION
  Report Type: Spontaneous
  Country: US (occurrence: US)
  Receive Date: 20180213
  Receipt Date: 20180312
  Transmission Date: 20180509
  Serious: Yes (Hospitalization, Other)
  Sender: FDA-Public Use
  Company Number: US-PFIZER INC-2018059189

PATIENT
  Age: 76 Year
  Sex: Female
  Weight: 63 kg

DRUGS (2)
  1. CELEBREX [Concomitant]
     Active Substance: CELECOXIB
     Indication: SYSTEMIC LUPUS ERYTHEMATOSUS
     Dosage: 2 TABLETS (DF), DAILY
  2. LYRICA [Suspect]
     Active Substance: PREGABALIN
     Indication: SYSTEMIC LUPUS ERYTHEMATOSUS
     Dosage: 225 MG, TWICE DAILY
     Dates: end: 201801

REACTIONS (8)
  - Carotid artery occlusion [Recovered/Resolved]
  - Coma [Unknown]
  - Swelling [Unknown]
  - Neck pain [Unknown]
  - Pain [Unknown]
  - Malignant melanoma [Not Recovered/Not Resolved]
  - Amnesia [Unknown]
  - Product use in unapproved indication [Unknown]

NARRATIVE: CASE EVENT DATE: 201706
